FAERS Safety Report 9790493 (Version 1)
Quarter: 2013Q4

REPORT INFORMATION
  Report Type: Spontaneous
  Country: CA (occurrence: CA)
  Receive Date: 20131231
  Receipt Date: 20131231
  Transmission Date: 20140711
  Serious: Yes (Other)
  Sender: FDA-Public Use
  Company Number: CA-BAXTER-2013BAX051808

PATIENT
  Age: 19 Year
  Sex: Female

DRUGS (9)
  1. PROCYTOX (CYCLOPHOSPHAMIDE) 1000MG/VIAL [Suspect]
     Indication: CONGENITAL FIBROSARCOMA
     Route: 065
  2. IFEX (IFOSFAMIDE FOR INJECTION) 3G [Suspect]
     Indication: CONGENITAL FIBROSARCOMA
     Route: 065
  3. VINCRISTINE [Suspect]
     Indication: CONGENITAL FIBROSARCOMA
     Route: 065
  4. ETOPOSIDE [Suspect]
     Indication: CONGENITAL FIBROSARCOMA
     Route: 065
  5. DOXORUBICIN [Suspect]
     Indication: PRODUCT USED FOR UNKNOWN INDICATION
     Route: 065
     Dates: start: 201211
  6. CARBOPLATIN [Suspect]
     Indication: PRODUCT USED FOR UNKNOWN INDICATION
     Route: 065
  7. LIPIODOL [Suspect]
     Indication: PRODUCT USED FOR UNKNOWN INDICATION
     Route: 065
     Dates: start: 201211
  8. TOPOTECAN [Suspect]
     Indication: PRODUCT USED FOR UNKNOWN INDICATION
     Route: 065
     Dates: start: 201211
  9. TOPOTECAN [Suspect]
     Route: 065

REACTIONS (2)
  - Disease progression [Not Recovered/Not Resolved]
  - Bone marrow failure [Unknown]
